FAERS Safety Report 14175511 (Version 1)
Quarter: 2017Q4

REPORT INFORMATION
  Report Type: Spontaneous
  Country: US (occurrence: US)
  Receive Date: 20171109
  Receipt Date: 20171109
  Transmission Date: 20180321
  Serious: No
  Sender: FDA-Public Use
  Company Number: US-ALLERGAN-1682117US

PATIENT
  Sex: Female

DRUGS (7)
  1. COMBIGAN [Suspect]
     Active Substance: BRIMONIDINE TARTRATE\TIMOLOL MALEATE
     Indication: GLAUCOMA
  2. COMBIGAN [Suspect]
     Active Substance: BRIMONIDINE TARTRATE\TIMOLOL MALEATE
     Indication: CORNEAL TRANSPLANT
     Dosage: UNK, TID
     Route: 047
     Dates: start: 2015
  3. TEARS [Concomitant]
     Indication: DRY EYE
     Dosage: UNK
     Route: 047
  4. LATANOPROST. [Concomitant]
     Active Substance: LATANOPROST
     Indication: CORNEAL TRANSPLANT
     Dosage: UNK UNK, QD
     Route: 047
  5. LOTEMAX [Concomitant]
     Active Substance: LOTEPREDNOL ETABONATE
     Indication: GLAUCOMA
  6. LOTEMAX [Concomitant]
     Active Substance: LOTEPREDNOL ETABONATE
     Indication: CORNEAL TRANSPLANT
     Dosage: UNK UNK, QD
     Route: 047
  7. LATANOPROST. [Concomitant]
     Active Substance: LATANOPROST
     Indication: GLAUCOMA

REACTIONS (3)
  - Ocular hyperaemia [Recovering/Resolving]
  - Inappropriate schedule of drug administration [Unknown]
  - Eye pain [Recovering/Resolving]

NARRATIVE: CASE EVENT DATE: 2015
